FAERS Safety Report 6814604-X (Version None)
Quarter: 2010Q3

REPORT INFORMATION
  Report Type: 
  Country: None (occurrence: None)
  Receive Date: 20100702
  Receipt Date: 20100622
  Transmission Date: 20110219
  Serious: Yes (Death, Life-Threatening, Hospitalization)
  Sender: FDA-Public Use
  Company Number: ES-CEPHALON-2010000983

PATIENT
  Sex: Male
  Weight: 65 kg

DRUGS (5)
  1. TREANDA [Suspect]
     Indication: B-CELL LYMPHOMA
     Dosage: 157-77 MG
     Route: 042
     Dates: start: 20100128, end: 20100129
  2. RITUXIMAB [Suspect]
     Indication: B-CELL LYMPHOMA
     Dosage: 137-38 MG
     Route: 042
     Dates: start: 20100128, end: 20100129
  3. MITOXANTRONE [Suspect]
     Indication: B-CELL LYMPHOMA
     Dosage: 10-52MG
     Route: 042
     Dates: start: 20100128, end: 20100129
  4. DEXAMETHASONE [Suspect]
     Indication: B-CELL LYMPHOMA
     Route: 048
     Dates: start: 20100128, end: 20100129
  5. NEO RECORMON [Concomitant]

REACTIONS (10)
  - CARDIOTOXICITY [None]
  - CYTOMEGALOVIRUS INFECTION [None]
  - FEBRILE NEUTROPENIA [None]
  - HAEMOPHILUS INFECTION [None]
  - HERPES SIMPLEX [None]
  - PSEUDOMONAS INFECTION [None]
  - RESPIRATORY FAILURE [None]
  - RESPIRATORY SYNCYTIAL VIRUS INFECTION [None]
  - SERRATIA INFECTION [None]
  - STAPHYLOCOCCAL INFECTION [None]
